FAERS Safety Report 7229162-8 (Version None)
Quarter: 2011Q1

REPORT INFORMATION
  Report Type: 
  Country: None (occurrence: None)
  Receive Date: 20110117
  Receipt Date: 20110111
  Transmission Date: 20110831
  Serious: Yes (Other)
  Sender: FDA-Public Use
  Company Number: JP-PFIZER INC-2010168510

PATIENT
  Age: 72 Year
  Sex: Male

DRUGS (11)
  1. ADALAT CC [Concomitant]
     Dosage: 20 MG, DAILY
     Route: 048
  2. LYRICA [Suspect]
     Indication: DIABETIC NEUROPATHY
     Dosage: 75 MG, 2X/DAY
     Route: 048
     Dates: start: 20101118, end: 20101203
  3. ARTIST [Concomitant]
     Dosage: 10 MG, DAILY
     Route: 048
  4. TAKEPRON [Concomitant]
     Dosage: 30 MG, DAILY
     Route: 048
  5. ASPIRIN [Concomitant]
     Dosage: 100 MG, DAILY
     Route: 048
  6. CRESTOR [Concomitant]
     Dosage: 2.5 MG, DAILY
     Route: 048
  7. PLAVIX [Concomitant]
     Dosage: 75 MG, DAILY
     Route: 048
  8. LOSARTAN POTASSIUM AND HYDROCHLOROTHIAZIDE [Concomitant]
     Dosage: UNK
     Route: 048
  9. WARFARIN [Concomitant]
     Dosage: 1 MG, DAILY
     Route: 048
  10. ZYLORIC ^FAES^ [Concomitant]
     Dosage: 100 MG, DAILY
     Route: 048
  11. INSULIN [Concomitant]
     Dosage: UNK

REACTIONS (4)
  - FACE OEDEMA [None]
  - OEDEMA PERIPHERAL [None]
  - PLEURAL EFFUSION [None]
  - CARDIOMEGALY [None]
